FAERS Safety Report 6591503-2 (Version None)
Quarter: 2010Q1

REPORT INFORMATION
  Report Type: 
  Country: None (occurrence: None)
  Receive Date: 20100219
  Receipt Date: 20100211
  Transmission Date: 20100710
  Serious: Yes (Death)
  Sender: FDA-Public Use
  Company Number: US-AMGEN-QUU392292

PATIENT
  Sex: Female

DRUGS (3)
  1. NPLATE [Suspect]
     Indication: IDIOPATHIC THROMBOCYTOPENIC PURPURA
     Dates: start: 20090119
  2. CORTICOSTEROIDS [Concomitant]
     Dates: start: 19870401
  3. IMMU-G [Concomitant]
     Route: 042
     Dates: start: 20081203

REACTIONS (1)
  - DEATH [None]
